FAERS Safety Report 8415779-1 (Version None)
Quarter: 2012Q2

REPORT INFORMATION
  Report Type: 
  Country: None (occurrence: None)
  Receive Date: 20120606
  Receipt Date: 20120531
  Transmission Date: 20120825
  Serious: Yes (Hospitalization)
  Sender: FDA-Public Use
  Company Number: US-JNJFOC-20120312374

PATIENT
  Sex: Male

DRUGS (31)
  1. DURAGESIC-100 [Suspect]
     Route: 062
  2. DURAGESIC-100 [Suspect]
     Route: 062
  3. SIMAVASTATIN [Concomitant]
     Indication: BLOOD CHOLESTEROL
     Route: 048
  4. DURAGESIC-100 [Suspect]
  5. FUROSEMIDE [Concomitant]
     Route: 048
  6. DURAGESIC-100 [Suspect]
     Route: 062
  7. DURAGESIC-100 [Suspect]
     Route: 062
  8. DURAGESIC-100 [Suspect]
     Indication: NERVE INJURY
     Route: 062
  9. DURAGESIC-100 [Suspect]
     Route: 062
  10. CELEBREX [Concomitant]
     Indication: ARTHRITIS
     Route: 048
  11. CYMBALTA [Concomitant]
     Route: 048
  12. WARFARIN SODIUM [Concomitant]
     Route: 048
  13. METFORMIN HCL [Concomitant]
     Indication: DIABETES MELLITUS
     Route: 048
  14. LASIX [Concomitant]
     Route: 065
  15. PREVACID [Concomitant]
     Indication: GASTROOESOPHAGEAL REFLUX DISEASE
     Route: 048
  16. DILTIAZEM [Concomitant]
     Route: 065
  17. UNKNOWN MEDICATION [Concomitant]
     Route: 065
  18. DURAGESIC-100 [Suspect]
     Route: 062
  19. TOPAMAX [Concomitant]
     Indication: TREMOR
     Route: 048
  20. CARTIA XT [Concomitant]
     Indication: HYPERTENSION
     Route: 048
  21. BACLOFEN [Concomitant]
     Indication: PAIN
     Route: 048
  22. KEFLEX [Suspect]
     Indication: PRODUCT USED FOR UNKNOWN INDICATION
     Route: 048
     Dates: start: 20080101, end: 20080101
  23. TOPAMAX [Concomitant]
     Indication: PAIN
     Route: 048
  24. HYDROCODONE [Concomitant]
     Indication: PAIN
     Dosage: 7.5/750 EVERY 4 AS NEEDED
     Route: 048
  25. SINGULAIR [Concomitant]
     Indication: ASTHMA
     Route: 048
  26. DURAGESIC-100 [Suspect]
     Indication: PAIN IN EXTREMITY
     Route: 062
  27. DURAGESIC-100 [Suspect]
     Route: 062
  28. DURAGESIC-100 [Suspect]
     Route: 062
  29. CEPHALEXIN [Suspect]
     Indication: PRODUCT USED FOR UNKNOWN INDICATION
     Route: 065
  30. GLUCOSAMINE SULFATE [Concomitant]
     Route: 065
  31. LISINOPRIL [Concomitant]
     Route: 048

REACTIONS (16)
  - STAPHYLOCOCCAL INFECTION [None]
  - INADEQUATE ANALGESIA [None]
  - TREMOR [None]
  - VIRAL PERICARDITIS [None]
  - PRODUCT QUALITY ISSUE [None]
  - INTENTIONAL DRUG MISUSE [None]
  - ARTHRALGIA [None]
  - BEDRIDDEN [None]
  - JOINT INJURY [None]
  - UNEVALUABLE EVENT [None]
  - PRODUCT SUBSTITUTION ISSUE [None]
  - ADVERSE DRUG REACTION [None]
  - WITHDRAWAL SYNDROME [None]
  - NEURALGIA [None]
  - DRUG HYPERSENSITIVITY [None]
  - CARDIAC DISORDER [None]
